FAERS Safety Report 9888208 (Version 1)
Quarter: 2014Q1

REPORT INFORMATION
  Report Type: Spontaneous
  Country: US (occurrence: US)
  Receive Date: 20140211
  Receipt Date: 20140211
  Transmission Date: 20141002
  Serious: Yes (Other)
  Sender: FDA-Public Use
  Company Number: US-ALEXION PHARMACEUTICALS INC.-A201400452

PATIENT
  Age: 38 Year
  Sex: Male

DRUGS (4)
  1. SOLIRIS 300MG [Suspect]
     Indication: ANTIPHOSPHOLIPID SYNDROME
     Dosage: 1200 MG, SINGLE
     Route: 042
     Dates: start: 201302, end: 201302
  2. SOLIRIS 300MG [Suspect]
     Indication: OFF LABEL USE
     Dosage: 900 MG, QW X 4
     Route: 042
     Dates: start: 201302
  3. SOLIRIS 300MG [Suspect]
     Dosage: 1200 MG, Q2W
     Route: 042
     Dates: start: 2013
  4. RITUXIMAB [Concomitant]
     Dosage: UNK

REACTIONS (2)
  - Blood creatinine increased [Unknown]
  - Off label use [Unknown]
